FAERS Safety Report 5662824-2 (Version None)
Quarter: 2008Q1

REPORT INFORMATION
  Report Type: 
  Country: None (occurrence: None)
  Receive Date: 20080313
  Receipt Date: 20080307
  Transmission Date: 20080703
  Serious: Yes (Other)
  Sender: FDA-Public Use
  Company Number: US-AVENTIS-200811527US

PATIENT
  Age: 63 Year
  Sex: Male

DRUGS (1)
  1. LANTUS [Suspect]
     Dosage: DOSE: UNK
     Route: 051

REACTIONS (5)
  - ACCIDENTAL EXPOSURE [None]
  - GANGRENE [None]
  - HYPERGLYCAEMIA [None]
  - RESPIRATORY DISORDER [None]
  - VISUAL DISTURBANCE [None]
